FAERS Safety Report 4833031-8 (Version None)
Quarter: 2005Q4

REPORT INFORMATION
  Report Type: 
  Country: None (occurrence: None)
  Receive Date: 20051121
  Receipt Date: 20051118
  Transmission Date: 20060501
  Serious: Yes (Life-Threatening, Other)
  Sender: FDA-Public Use
  Company Number: ZA-BRISTOL-MYERS SQUIBB COMPANY-13187711

PATIENT
  Age: 14 Year
  Sex: Female
  Weight: 49 kg

DRUGS (5)
  1. ATAZANAVIR [Suspect]
     Indication: HIV INFECTION
     Route: 048
     Dates: start: 20051102, end: 20051109
  2. STAVUDINE [Suspect]
     Indication: HIV INFECTION
     Route: 048
     Dates: start: 20051102, end: 20051109
  3. LAMIVUDINE [Suspect]
     Indication: HIV INFECTION
     Route: 048
     Dates: start: 20051102, end: 20051109
  4. BACTRIM [Concomitant]
     Dates: start: 20051012
  5. MULTI-VITAMIN [Concomitant]
     Dates: start: 20051012

REACTIONS (2)
  - BILIRUBIN CONJUGATED INCREASED [None]
  - HYPERBILIRUBINAEMIA [None]
